FAERS Safety Report 11156232 (Version 2)
Quarter: 2015Q2

REPORT INFORMATION
  Report Type: Spontaneous
  Country: JP (occurrence: JP)
  Receive Date: 20150602
  Receipt Date: 20150616
  Transmission Date: 20150821
  Serious: Yes (Hospitalization)
  Sender: FDA-Public Use
  Company Number: JP-HOSPIRA-2882098

PATIENT
  Age: 77 Year
  Sex: Male

DRUGS (4)
  1. BEVACIZUMAB [Concomitant]
     Active Substance: BEVACIZUMAB
     Indication: NEOPLASM MALIGNANT
     Route: 042
     Dates: start: 20150512, end: 20150512
  2. OXALIPLATIN. [Suspect]
     Active Substance: OXALIPLATIN
     Indication: NEOPLASM MALIGNANT
     Dosage: 1 BOTTLE OF 50 MG AND 100 MG EACH
     Route: 042
     Dates: start: 20150512, end: 20150512
  3. FLUOROURACIL. [Suspect]
     Active Substance: FLUOROURACIL
     Indication: NEOPLASM MALIGNANT
     Route: 042
     Dates: start: 20150512, end: 20150512
  4. LEVOFOLINATE CALCIUM [Concomitant]
     Active Substance: LEUCOVORIN CALCIUM
     Indication: NEOPLASM MALIGNANT
     Route: 042
     Dates: start: 20150512, end: 20150512

REACTIONS (2)
  - Hyperammonaemia [Recovering/Resolving]
  - Hyperuricaemia [Recovering/Resolving]

NARRATIVE: CASE EVENT DATE: 20150514
